FAERS Safety Report 6435991-0 (Version None)
Quarter: 2009Q4

REPORT INFORMATION
  Report Type: 
  Country: None (occurrence: None)
  Receive Date: 20091111
  Receipt Date: 20091104
  Transmission Date: 20100525
  Serious: Yes (Other)
  Sender: FDA-Public Use
  Company Number: US-BAYER-200916382BCC

PATIENT
  Age: 61 Year
  Sex: Male
  Weight: 110 kg

DRUGS (4)
  1. ASPIRIN [Suspect]
     Indication: NASOPHARYNGITIS
     Dosage: TOOK THE CONTENTS OF A 200 COUNT SIZE BOTTLE OF THE 325 MILLIGRAM GENUINE BAYER ASPIRIN TABLETS WIT
     Route: 048
  2. UNKNOWN SUDAFED [Concomitant]
     Route: 065
  3. FORADIL [Concomitant]
     Route: 065
  4. FLUNISOLIDE [Concomitant]
     Route: 045

REACTIONS (4)
  - CRANIAL NERVE DISORDER [None]
  - EYE DISORDER [None]
  - EYELID PTOSIS [None]
  - HYPOAESTHESIA ORAL [None]
